FAERS Safety Report 4984861-3 (Version None)
Quarter: 2006Q2

REPORT INFORMATION
  Report Type: 
  Country: None (occurrence: None)
  Receive Date: 20060427
  Receipt Date: 20050718
  Transmission Date: 20061013
  Serious: Yes (Disabling)
  Sender: FDA-Public Use
  Company Number: US-ROCHE-411238

PATIENT
  Age: 15 Year
  Sex: Female
  Weight: 61.2 kg

DRUGS (3)
  1. ACCUTANE [Suspect]
     Indication: ACNE
     Route: 048
     Dates: start: 20030115, end: 20030715
  2. ACCUTANE [Suspect]
     Route: 048
     Dates: start: 20031015, end: 20031115
  3. ORAL CONTRACEPTIVE PILL [Concomitant]
     Indication: DRUG USE FOR UNKNOWN INDICATION
     Route: 048

REACTIONS (18)
  - ABDOMINAL PAIN [None]
  - AFFECT LABILITY [None]
  - AMNESIA [None]
  - ARTHRALGIA [None]
  - ARTHROPATHY [None]
  - AUTOMATISM [None]
  - BONE DISORDER [None]
  - BOWEL MOVEMENT IRREGULARITY [None]
  - DELIRIUM [None]
  - DEPRESSION [None]
  - GASTROINTESTINAL DISORDER [None]
  - HAEMORRHAGE [None]
  - IMPULSE-CONTROL DISORDER [None]
  - INSOMNIA [None]
  - LIGAMENT OPERATION [None]
  - MEMORY IMPAIRMENT [None]
  - RECTAL HAEMORRHAGE [None]
  - SUICIDAL IDEATION [None]
